FAERS Safety Report 10404783 (Version 3)
Quarter: 2015Q2

REPORT INFORMATION
  Report Type: Report from Study
  Country: CA (occurrence: CA)
  Receive Date: 20140825
  Receipt Date: 20150501
  Transmission Date: 20150821
  Serious: Yes (Hospitalization, Other)
  Sender: FDA-Public Use
  Company Number: CA-AMGEN-CANSP2014063476

PATIENT
  Age: 74 Year
  Sex: Female

DRUGS (1)
  1. NPLATE [Suspect]
     Active Substance: ROMIPLOSTIM
     Indication: THROMBOCYTOPENIA
     Dosage: UNK
     Route: 065
     Dates: start: 20140506

REACTIONS (5)
  - Bronchiectasis [Unknown]
  - Transfusion [Unknown]
  - Joint swelling [Not Recovered/Not Resolved]
  - Hospitalisation [Unknown]
  - Pain in extremity [Not Recovered/Not Resolved]
